FAERS Safety Report 9111207 (Version 1)
Quarter: 2013Q1

REPORT INFORMATION
  Report Type: Spontaneous
  Country: US (occurrence: US)
  Receive Date: 20130219
  Receipt Date: 20130219
  Transmission Date: 20140127
  Serious: No
  Sender: FDA-Public Use
  Company Number: US-BRISTOL-MYERS SQUIBB COMPANY-16603920

PATIENT
  Age: 37 Year
  Sex: Male
  Weight: 96.14 kg

DRUGS (1)
  1. ORENCIA [Suspect]
     Dosage: ALSO ON SQ ABATACEPT SELF-INJECTION 125MG ON 16-MAY-2012
     Route: 042

REACTIONS (3)
  - Eye pain [Not Recovered/Not Resolved]
  - Ocular hyperaemia [Not Recovered/Not Resolved]
  - Vision blurred [Not Recovered/Not Resolved]
